FAERS Safety Report 24354970 (Version 8)
Quarter: 2025Q1

REPORT INFORMATION
  Report Type: Report from Study
  Country: US (occurrence: US)
  Receive Date: 20240923
  Receipt Date: 20250131
  Transmission Date: 20250409
  Serious: Yes (Other)
  Sender: SUNOVION
  Company Number: US-SUMITOMO PHARMA SWITZERLAND GMBH-2024SPA003026

PATIENT

DRUGS (4)
  1. ORGOVYX [Suspect]
     Active Substance: RELUGOLIX
     Indication: Prostate cancer
     Dosage: 360 MG, SINGLE
     Route: 048
  2. ORGOVYX [Suspect]
     Active Substance: RELUGOLIX
     Dosage: 120 MG, QD
     Route: 048
     Dates: start: 20240912
  3. ERLEADA [Suspect]
     Active Substance: APALUTAMIDE
     Route: 065
  4. MEGASTROL [Concomitant]
     Dosage: 20 MG, BID
     Route: 065

REACTIONS (14)
  - Seizure like phenomena [Unknown]
  - Feeling abnormal [Unknown]
  - Feeling cold [Unknown]
  - Appetite disorder [Unknown]
  - Blood glucose fluctuation [Unknown]
  - Bladder disorder [Unknown]
  - Hypersensitivity [Unknown]
  - Depressed mood [Unknown]
  - Dizziness [Unknown]
  - Asthenia [Unknown]
  - Blood glucose increased [Unknown]
  - Fatigue [Not Recovered/Not Resolved]
  - Hot flush [Not Recovered/Not Resolved]
  - Pain in extremity [Unknown]

NARRATIVE: CASE EVENT DATE: 20241203
